FAERS Safety Report 17308033 (Version 1)
Quarter: 2020Q1

REPORT INFORMATION
  Report Type: Spontaneous
  Country: US (occurrence: US)
  Receive Date: 20200122
  Receipt Date: 20200122
  Transmission Date: 20200409
  Serious: Yes (Hospitalization)
  Sender: FDA-Public Use
  Company Number: None

PATIENT
  Age: 60 Year
  Sex: Female

DRUGS (12)
  1. LOSARTAN POT TAB [Concomitant]
  2. BUMETANIDE TAB [Concomitant]
  3. SEVELAMER TAB [Concomitant]
  4. HYDRALAZINE TAB [Concomitant]
  5. ESCITALOPRAM TAB [Concomitant]
  6. LANTUS SOLOS INJ [Concomitant]
  7. SIMVASTATIN TAB [Concomitant]
     Active Substance: SIMVASTATIN
  8. GABAPENTIN CAP [Concomitant]
  9. AMLODIPINE TAB [Concomitant]
  10. ENBREL [Suspect]
     Active Substance: ETANERCEPT
     Indication: RHEUMATOID ARTHRITIS
     Dosage: ?          OTHER FREQUENCY:EVERY WEEK;?
     Route: 058
     Dates: start: 20171109
  11. PREDNISONE TAB [Concomitant]
     Active Substance: PREDNISONE
  12. CARVEDILOL TAB [Concomitant]
     Active Substance: CARVEDILOL

REACTIONS (1)
  - Intensive care [None]

NARRATIVE: CASE EVENT DATE: 20200115
